FAERS Safety Report 11847205 (Version 1)
Quarter: 2015Q4

REPORT INFORMATION
  Report Type: Spontaneous
  Country: US (occurrence: US)
  Receive Date: 20151217
  Receipt Date: 20151217
  Transmission Date: 20160305
  Serious: Yes (Other)
  Sender: FDA-Public Use
  Company Number: US-ROCHE-309603

PATIENT
  Age: 42 Year
  Sex: Female

DRUGS (4)
  1. CLARINEX [Suspect]
     Active Substance: DESLORATADINE
     Indication: SINUSITIS
     Route: 048
     Dates: start: 20020227, end: 20020304
  2. TAMIFLU [Suspect]
     Active Substance: OSELTAMIVIR PHOSPHATE
     Indication: PAIN
     Route: 065
  3. LAMICTAL [Concomitant]
     Active Substance: LAMOTRIGINE
     Indication: SEIZURE
     Route: 048
  4. TEQUIN [Suspect]
     Active Substance: GATIFLOXACIN
     Indication: SINUSITIS
     Route: 048
     Dates: start: 20020227, end: 20020304

REACTIONS (1)
  - Seizure [Recovering/Resolving]

NARRATIVE: CASE EVENT DATE: 20020303
